FAERS Safety Report 18147099 (Version 1)
Quarter: 2020Q3

REPORT INFORMATION
  Report Type: Spontaneous
  Country: ES (occurrence: ES)
  Receive Date: 20200813
  Receipt Date: 20200813
  Transmission Date: 20201103
  Serious: Yes (Death, Hospitalization, Other)
  Sender: FDA-Public Use
  Company Number: ES-TEVA-2020-ES-1812525

PATIENT
  Age: 41 Year
  Sex: Male

DRUGS (6)
  1. VENLAFAXINE [Suspect]
     Active Substance: VENLAFAXINE HYDROCHLORIDE
     Indication: ADJUSTMENT DISORDER WITH DEPRESSED MOOD
     Route: 065
  2. TRAMADOL W/PARACETAMOL [Suspect]
     Active Substance: ACETAMINOPHEN\TRAMADOL
     Indication: SPINAL OSTEOARTHRITIS
     Route: 065
  3. MIDAZOLAM. [Concomitant]
     Active Substance: MIDAZOLAM
  4. BERIPLEX HS [Suspect]
     Active Substance: COAGULATION FACTOR IX HUMAN\COAGULATION FACTOR VII HUMAN\COAGULATION FACTOR X HUMAN\PROTEIN C\PROTEIN S HUMAN\PROTHROMBIN
     Indication: EAR HAEMORRHAGE
     Dosage: 4 VIALS
     Route: 065
  5. DIAZEPAM. [Suspect]
     Active Substance: DIAZEPAM
     Indication: PRODUCT USED FOR UNKNOWN INDICATION
     Dosage: AT NIGHT
     Route: 065
  6. RINGER^S SERUM (SODIUM LACTATE\POTASSIUM CHLORIDE\SODIUM CHLORIDE\CALCIUM CHLORIDE DIHYDRATE) [Suspect]
     Active Substance: CALCIUM CHLORIDE\POTASSIUM CHLORIDE\SODIUM CHLORIDE\SODIUM LACTATE
     Indication: EAR HAEMORRHAGE
     Dosage: 3 LITRES
     Route: 065

REACTIONS (18)
  - Fall [Unknown]
  - Pulse absent [Fatal]
  - Bradycardia [Fatal]
  - Confusional state [Unknown]
  - Dizziness [Unknown]
  - Ear haemorrhage [Fatal]
  - Forearm fracture [Unknown]
  - Pulmonary contusion [Fatal]
  - Skull fractured base [Unknown]
  - Drug ineffective [Fatal]
  - Cognitive disorder [Unknown]
  - Coma [Fatal]
  - Mydriasis [Unknown]
  - Cardiac arrest [Fatal]
  - Sensory disturbance [Unknown]
  - Toxicity to various agents [Unknown]
  - Hypotension [Fatal]
  - Craniocerebral injury [Fatal]
